FAERS Safety Report 7576732-3 (Version None)
Quarter: 2011Q2

REPORT INFORMATION
  Report Type: 
  Country: None (occurrence: None)
  Receive Date: 20110628
  Receipt Date: 20110621
  Transmission Date: 20111010
  Serious: Yes (Other)
  Sender: FDA-Public Use
  Company Number: US-ABBOTT-11P-163-0734298-00

PATIENT
  Sex: Female

DRUGS (2)
  1. HUMIRA [Suspect]
     Route: 058
     Dates: start: 20090101, end: 20091001
  2. HUMIRA [Suspect]
     Indication: RHEUMATOID ARTHRITIS
     Route: 058
     Dates: start: 20061101, end: 20080801

REACTIONS (7)
  - FALL [None]
  - ARTHROPATHY [None]
  - COUGH [None]
  - BRONCHITIS [None]
  - DYSPNOEA [None]
  - LUNG NEOPLASM [None]
  - ANKLE FRACTURE [None]
